FAERS Safety Report 15499402 (Version 1)
Quarter: 2018Q4

REPORT INFORMATION
  Report Type: Spontaneous
  Country: IL (occurrence: IL)
  Receive Date: 20181015
  Receipt Date: 20181015
  Transmission Date: 20190205
  Serious: Yes (Hospitalization, Other)
  Sender: FDA-Public Use
  Company Number: IL-IMPAX LABORATORIES, INC-2018-IPXL-03233

PATIENT
  Age: 21 Year
  Sex: Female

DRUGS (10)
  1. BUPROPION HYDROCHLORIDE EXTENDED-RELEASE [Suspect]
     Active Substance: BUPROPION HYDROCHLORIDE
     Indication: PRODUCT USE IN UNAPPROVED INDICATION
     Dosage: UNK
     Route: 065
  2. FLUOXETINE [Suspect]
     Active Substance: FLUOXETINE HYDROCHLORIDE
     Indication: INTENTIONAL SELF-INJURY
  3. FLUOXETINE [Suspect]
     Active Substance: FLUOXETINE HYDROCHLORIDE
     Indication: SUICIDE ATTEMPT
  4. QUETIAPINE. [Suspect]
     Active Substance: QUETIAPINE
     Indication: SUICIDE ATTEMPT
  5. BUPROPION HYDROCHLORIDE EXTENDED-RELEASE [Suspect]
     Active Substance: BUPROPION HYDROCHLORIDE
     Indication: DRUG ABUSE
     Dosage: 300-450 MG/DAY
     Route: 065
  6. BUPROPION HYDROCHLORIDE EXTENDED-RELEASE [Suspect]
     Active Substance: BUPROPION HYDROCHLORIDE
     Indication: BULIMIA NERVOSA
     Dosage: 3,000-4,500 MG/DAY
     Route: 065
  7. QUETIAPINE. [Suspect]
     Active Substance: QUETIAPINE
     Indication: INSOMNIA
     Dosage: 200 MG, DAILY
     Route: 065
  8. QUETIAPINE. [Suspect]
     Active Substance: QUETIAPINE
     Indication: ANXIETY
     Dosage: 25 MG, DAILY
     Route: 065
  9. BUPROPION HYDROCHLORIDE EXTENDED-RELEASE [Suspect]
     Active Substance: BUPROPION HYDROCHLORIDE
     Indication: SUICIDE ATTEMPT
     Dosage: 1,200-1,500 MG/DAY
     Route: 065
  10. FLUOXETINE [Suspect]
     Active Substance: FLUOXETINE HYDROCHLORIDE
     Indication: MAJOR DEPRESSION
     Dosage: 20 MG, DAILY
     Route: 065

REACTIONS (13)
  - Generalised tonic-clonic seizure [Recovered/Resolved]
  - Pancreatitis [Unknown]
  - Intentional self-injury [Not Recovered/Not Resolved]
  - Amnesia [Unknown]
  - Anxiety [Unknown]
  - Headache [Unknown]
  - Suicide attempt [Recovered/Resolved]
  - Drug abuse [Not Recovered/Not Resolved]
  - Tachycardia [Unknown]
  - Weight decreased [Recovered/Resolved]
  - Product use in unapproved indication [Unknown]
  - Overdose [Unknown]
  - Insomnia [Unknown]
